FAERS Safety Report 15500647 (Version 1)
Quarter: 2018Q4

REPORT INFORMATION
  Report Type: Spontaneous
  Country: US (occurrence: US)
  Receive Date: 20181015
  Receipt Date: 20181015
  Transmission Date: 20190205
  Serious: Yes (Other)
  Sender: FDA-Public Use
  Company Number: PHHY2018US123923

PATIENT

DRUGS (1)
  1. PASIREOTIDE LAR [Suspect]
     Active Substance: PASIREOTIDE
     Indication: HEPATOCELLULAR CARCINOMA
     Dosage: 60 MG, (EVERY 28 DAYS)
     Route: 030

REACTIONS (5)
  - Product use in unapproved indication [Unknown]
  - Aspartate aminotransferase increased [Recovering/Resolving]
  - Malignant neoplasm progression [Unknown]
  - Hepatocellular carcinoma [Unknown]
  - Alanine aminotransferase increased [Recovering/Resolving]
